FAERS Safety Report 8164090-5 (Version None)
Quarter: 2012Q1

REPORT INFORMATION
  Report Type: 
  Country: None (occurrence: None)
  Receive Date: 20120103
  Receipt Date: 20111003
  Transmission Date: 20120608
  Serious: No
  Sender: FDA-Public Use
  Company Number: AE-2011-002000

PATIENT
  Age: 56 Year
  Sex: Male

DRUGS (3)
  1. RIBAVIRIN [Concomitant]
  2. INCIVEK [Suspect]
     Dosage: 2250 MG (750 MG, 3 IN 1 D)
     Dates: start: 20110916
  3. PEGASYS [Concomitant]

REACTIONS (6)
  - DIARRHOEA [None]
  - FATIGUE [None]
  - DECREASED APPETITE [None]
  - DYSGEUSIA [None]
  - DIZZINESS POSTURAL [None]
  - PAIN IN EXTREMITY [None]
